FAERS Safety Report 8697966 (Version 2)
Quarter: 2012Q4

REPORT INFORMATION
  Report Type: 
  Country: GB (occurrence: GB)
  Receive Date: 20120801
  Receipt Date: 20121214
  Transmission Date: 20130627
  Serious: Yes (Other)
  Sender: FDA-Public Use
  Company Number: GB-TEVA-350285ISR

PATIENT
  Age: 62 Year
  Sex: Female
  Weight: 61.68 kg

DRUGS (2)
  1. SIMVASTATIN [Suspect]
     Indication: BLOOD CHOLESTEROL INCREASED
     Route: 048
     Dates: start: 20120423, end: 20120713
  2. INSULIN [Concomitant]

REACTIONS (10)
  - Myositis [Recovering/Resolving]
  - Memory impairment [Recovering/Resolving]
  - Nausea [Recovering/Resolving]
  - Fatigue [Recovering/Resolving]
  - Myalgia [Unknown]
  - Oedema peripheral [Unknown]
  - Headache [Unknown]
  - Disturbance in attention [Unknown]
  - Depression [Unknown]
  - Amnesia [Unknown]
